FAERS Safety Report 15500014 (Version 1)
Quarter: 2018Q4

REPORT INFORMATION
  Report Type: Other
  Country: TR (occurrence: TR)
  Receive Date: 20181015
  Receipt Date: 20181015
  Transmission Date: 20190205
  Serious: Yes (Death, Hospitalization)
  Sender: FDA-Public Use
  Company Number: TR-ACTELION-A-CH2018-180049

PATIENT
  Age: 1 Year
  Sex: Female
  Weight: 7.3 kg

DRUGS (2)
  1. BOSENTAN. [Suspect]
     Active Substance: BOSENTAN
     Indication: PULMONARY ARTERIAL HYPERTENSION
     Dosage: 15 MG, BID
     Route: 048
     Dates: start: 20090901, end: 20101212
  2. ILOPROST. [Concomitant]
     Active Substance: ILOPROST
     Indication: SUPPORTIVE CARE
     Dosage: 10 MCG, Q4HRS
     Route: 055
     Dates: start: 20100609, end: 20101212

REACTIONS (1)
  - Pulmonary hypertensive crisis [Fatal]
